FAERS Safety Report 6759297-5 (Version None)
Quarter: 2010Q2

REPORT INFORMATION
  Report Type: 
  Country: None (occurrence: None)
  Receive Date: 20100607
  Receipt Date: 20100526
  Transmission Date: 20101027
  Serious: Yes (Other)
  Sender: FDA-Public Use
  Company Number: ZA-PFIZER INC-2010065827

PATIENT
  Age: 70 Year
  Sex: Male

DRUGS (4)
  1. MEDROL [Suspect]
     Indication: NEPHRITIS
     Dosage: 48 MG, 1X/DAY
     Route: 048
  2. METHYLPREDNISOLONE SODIUM SUCCINATE [Suspect]
     Indication: NEPHRITIS
     Dosage: 2 DRIPS PER DAY FOR 3 DAYS
     Route: 042
  3. TAMSULOSIN [Concomitant]
     Dosage: UNK
     Route: 048
  4. EPREX [Concomitant]
     Indication: RED BLOOD CELL COUNT DECREASED
     Dosage: UNK

REACTIONS (4)
  - MUSCLE ATROPHY [None]
  - NAUSEA [None]
  - TREMOR [None]
  - VERTIGO [None]
